FAERS Safety Report 12811244 (Version 1)
Quarter: 2016Q4

REPORT INFORMATION
  Report Type: Spontaneous
  Country: US (occurrence: US)
  Receive Date: 20161004
  Receipt Date: 20161004
  Transmission Date: 20170207
  Serious: No
  Sender: FDA-Public Use
  Company Number: None

PATIENT
  Age: 5 Month
  Sex: Male
  Weight: 8.1 kg

DRUGS (2)
  1. INFANTS TYLENOL [Concomitant]
     Active Substance: ACETAMINOPHEN
  2. BABY TEETHING (HYLAND HOMEOPATHIC) [Suspect]
     Active Substance: HOMEOPATHICS
     Indication: TEETHING
     Dosage: QUANTITY:250 TABLET(S); 4 TIMES AQ DAY?
     Route: 048
     Dates: start: 20160924, end: 20160930

REACTIONS (2)
  - Irritability [None]
  - Faeces hard [None]

NARRATIVE: CASE EVENT DATE: 20160928
